FAERS Safety Report 6285805-7 (Version None)
Quarter: 2009Q3

REPORT INFORMATION
  Report Type: 
  Country: None (occurrence: None)
  Receive Date: 20090728
  Receipt Date: 20090714
  Transmission Date: 20100115
  Serious: Yes (Hospitalization)
  Sender: FDA-Public Use
  Company Number: US-BIOGENIDEC-2009BI013569

PATIENT
  Age: 61 Year
  Sex: Female

DRUGS (16)
  1. TYSABRI [Suspect]
     Indication: MULTIPLE SCLEROSIS
     Route: 042
     Dates: start: 20061009
  2. ESTRACE [Concomitant]
  3. LIPITOR [Concomitant]
  4. PROZAC [Concomitant]
  5. VITAMIN D3 [Concomitant]
  6. FISH OIL [Concomitant]
  7. DESYRAL [Concomitant]
  8. VALIUM [Concomitant]
  9. THYROID TAB [Concomitant]
  10. MIRALAX [Concomitant]
  11. DETROL LA [Concomitant]
  12. LEVAQUIN [Concomitant]
  13. DILAUDID [Concomitant]
  14. OXYCONTIN [Concomitant]
  15. TYLENOL [Concomitant]
  16. PRILOSEC [Concomitant]

REACTIONS (18)
  - ABDOMINAL ADHESIONS [None]
  - ABDOMINAL STRANGULATED HERNIA [None]
  - ADRENAL MASS [None]
  - ANAEMIA POSTOPERATIVE [None]
  - BACTEROIDES BACTERAEMIA [None]
  - BODY TEMPERATURE INCREASED [None]
  - CHEST PAIN [None]
  - CITROBACTER INFECTION [None]
  - CONSTIPATION [None]
  - DIARRHOEA [None]
  - ESCHERICHIA INFECTION [None]
  - FAILURE TO THRIVE [None]
  - INTESTINAL INFARCTION [None]
  - PAIN [None]
  - PELVIC ABSCESS [None]
  - POST PROCEDURAL COMPLICATION [None]
  - PROCEDURAL PAIN [None]
  - URINARY TRACT INFECTION ENTEROCOCCAL [None]
